FAERS Safety Report 6148277-9 (Version None)
Quarter: 2009Q2

REPORT INFORMATION
  Report Type: 
  Country: None (occurrence: None)
  Receive Date: 20090408
  Receipt Date: 20090331
  Transmission Date: 20091009
  Serious: Yes (Hospitalization, Other)
  Sender: FDA-Public Use
  Company Number: US-ELI_LILLY_AND_COMPANY-US200904000090

PATIENT
  Sex: Female

DRUGS (10)
  1. HUMULIN N [Suspect]
     Indication: TYPE 2 DIABETES MELLITUS
     Dosage: 18 U, EACH MORNING
     Dates: start: 20030101
  2. HUMULIN N [Suspect]
     Dosage: 16 U, EACH EVENING
     Dates: start: 20030101
  3. HUMULIN N [Suspect]
     Dosage: 14 U, EACH MORNING
  4. HUMULIN N [Suspect]
     Dosage: 6 U, EACH EVENING
  5. HUMULIN N [Suspect]
     Dosage: 12 U, EACH MORNING
     Dates: start: 20090326
  6. HUMULIN N [Suspect]
     Dosage: 4 U, EACH EVENING
  7. HUMULIN 50/50 [Suspect]
     Indication: TYPE 2 DIABETES MELLITUS
     Dates: end: 20030101
  8. ADVAIR HFA [Concomitant]
     Indication: ASTHMA
  9. COMBIVENT [Concomitant]
     Indication: ASTHMA
  10. QUINAPRIL [Concomitant]
     Indication: HYPERTENSION
     Dosage: 40 MG, DAILY (1/D)

REACTIONS (8)
  - BLOOD GLUCOSE INCREASED [None]
  - DIZZINESS [None]
  - DYSPNOEA [None]
  - HYPERTENSION [None]
  - HYPOGLYCAEMIC UNCONSCIOUSNESS [None]
  - INSOMNIA [None]
  - LOSS OF CONSCIOUSNESS [None]
  - VOMITING [None]
